FAERS Safety Report 24893857 (Version 1)
Quarter: 2025Q1

REPORT INFORMATION
  Report Type: Spontaneous
  Country: CN (occurrence: CN)
  Receive Date: 20250128
  Receipt Date: 20250128
  Transmission Date: 20250409
  Serious: Yes (Hospitalization)
  Sender: ACCORD
  Company Number: None

PATIENT
  Age: 65 Year
  Sex: Female

DRUGS (4)
  1. TRASTUZUMAB [Suspect]
     Active Substance: TRASTUZUMAB
     Indication: Invasive breast carcinoma
     Dosage: 360 MILLIGRAM, QD; IV DRIP?STRENGTH: 150 MILLIGRAM
     Dates: start: 20241110, end: 20241110
  2. CARBOPLATIN [Suspect]
     Active Substance: CARBOPLATIN
     Indication: Invasive breast carcinoma
     Dosage: 540 MILLIGRAM, QD; IV DRIP
     Dates: start: 20241110, end: 20241110
  3. PERTUZUMAB [Suspect]
     Active Substance: PERTUZUMAB
     Indication: Invasive breast carcinoma
     Dosage: 420 MILLIGRAM, QD; IV DRIP
     Dates: start: 20241110, end: 20241110
  4. PACLITAXEL [Suspect]
     Active Substance: PACLITAXEL
     Indication: Invasive breast carcinoma
     Dosage: 210 MILLIGRAM, QD; IV DRIP
     Dates: start: 20241110, end: 20241110

REACTIONS (1)
  - Myelosuppression [Recovering/Resolving]

NARRATIVE: CASE EVENT DATE: 20241129
